FAERS Safety Report 7419783-1 (Version None)
Quarter: 2011Q2

REPORT INFORMATION
  Report Type: 
  Country: None (occurrence: None)
  Receive Date: 20110413
  Receipt Date: 20110413
  Transmission Date: 20111010
  Serious: Yes (Other)
  Sender: FDA-Public Use
  Company Number: None

PATIENT
  Sex: Male
  Weight: 92.0802 kg

DRUGS (1)
  1. LYRICA [Suspect]
     Indication: BURNING SENSATION
     Dosage: 50 MG 3 TIMES A DAY
     Dates: start: 20080101, end: 20110101

REACTIONS (2)
  - WEIGHT INCREASED [None]
  - SWELLING FACE [None]
